FAERS Safety Report 4289753-3 (Version None)
Quarter: 2004Q1

REPORT INFORMATION
  Report Type: 
  Country: None (occurrence: None)
  Receive Date: 20040210
  Receipt Date: 20040202
  Transmission Date: 20041129
  Serious: Yes (Hospitalization)
  Sender: FDA-Public Use
  Company Number: US-GLAXOSMITHKLINE-A0496022A

PATIENT
  Sex: Female

DRUGS (1)
  1. LOTRONEX [Suspect]
     Indication: IRRITABLE BOWEL SYNDROME
     Route: 048
     Dates: start: 20031030, end: 20031215

REACTIONS (8)
  - ANAEMIA [None]
  - ASTHENIA [None]
  - CONDITION AGGRAVATED [None]
  - EATING DISORDER [None]
  - FAECES DISCOLOURED [None]
  - INSOMNIA [None]
  - IRRITABLE BOWEL SYNDROME [None]
  - WEIGHT DECREASED [None]
